FAERS Safety Report 20764567 (Version 1)
Quarter: 2022Q2

REPORT INFORMATION
  Report Type: Report from Study
  Country: TR (occurrence: TR)
  Receive Date: 20220428
  Receipt Date: 20220428
  Transmission Date: 20220720
  Serious: Yes (Hospitalization)
  Sender: FDA-Public Use
  Company Number: TR-PFIZER INC-202101178969

PATIENT
  Age: 51 Year
  Sex: Female
  Weight: 87 kg

DRUGS (5)
  1. NIRMATRELVIR [Suspect]
     Active Substance: NIRMATRELVIR
     Indication: COVID-19
     Dosage: 300 MG, 2X/DAY (EVERY 12 HOURS)-PLANNED FOR 5 DAYS
     Route: 048
     Dates: start: 20210907, end: 20210907
  2. RITONAVIR [Suspect]
     Active Substance: RITONAVIR
     Indication: COVID-19
     Dosage: 100 MG, 2X/DAY (EVERY 12 HOURS)-PLANNED FOR 5 DAYS
     Route: 048
     Dates: start: 20210907, end: 20210907
  3. METFORMIN [Concomitant]
     Active Substance: METFORMIN HYDROCHLORIDE
     Indication: Diabetes mellitus
     Dosage: UNK MG, 1X/DAY
     Route: 048
     Dates: start: 20210807
  4. LANSOPRAZOLE [Concomitant]
     Active Substance: LANSOPRAZOLE
     Indication: Abdominal tenderness
     Dosage: UNK MG, 1X/DAY
     Route: 048
     Dates: start: 2011, end: 20210901
  5. CHOLECALCIFEROL [Concomitant]
     Active Substance: CHOLECALCIFEROL
     Indication: Prophylaxis
     Dosage: UNK IU, 1X/DAY
     Route: 048
     Dates: start: 20210903, end: 20210906

REACTIONS (1)
  - Oxygen saturation decreased [Recovered/Resolved]

NARRATIVE: CASE EVENT DATE: 20210907
